FAERS Safety Report 7091426-9 (Version None)
Quarter: 2010Q4

REPORT INFORMATION
  Report Type: 
  Country: None (occurrence: None)
  Receive Date: 20101109
  Receipt Date: 20101104
  Transmission Date: 20110411
  Serious: Yes (Death)
  Sender: FDA-Public Use
  Company Number: DK-ELI_LILLY_AND_COMPANY-DK201010004790

PATIENT
  Sex: Female
  Weight: 52.8 kg

DRUGS (5)
  1. TERIPARATIDE [Suspect]
     Indication: OSTEOPOROSIS
     Dosage: 20 UG, DAILY (1/D)
     Route: 058
     Dates: start: 20100602
  2. OMEPRAZOLE [Concomitant]
     Indication: GASTRIC ULCER
     Dates: start: 20061101
  3. OXYNORM [Concomitant]
     Indication: PAIN
     Dates: start: 20060601
  4. PINEX [Concomitant]
     Indication: PAIN
  5. ZOFRAN [Concomitant]
     Indication: NAUSEA

REACTIONS (1)
  - CARDIAC ARREST [None]
